FAERS Safety Report 8828006 (Version 3)
Quarter: 2013Q2

REPORT INFORMATION
  Report Type: Spontaneous
  Country: US (occurrence: US)
  Receive Date: 20121008
  Receipt Date: 20130515
  Transmission Date: 20140414
  Serious: Yes (Hospitalization)
  Sender: FDA-Public Use
  Company Number: US-009507513-1210USA001759

PATIENT
  Age: 26 Year
  Sex: Female
  Weight: 88.89 kg

DRUGS (4)
  1. IMPLANON [Suspect]
     Indication: CONTRACEPTION
     Dosage: UNK
     Route: 059
     Dates: start: 20120502, end: 20121126
  2. LAMICTAL [Concomitant]
  3. TRAZODONE [Concomitant]
  4. TOPAMAX [Concomitant]

REACTIONS (6)
  - Complication of device removal [Recovered/Resolved]
  - Migraine [Recovering/Resolving]
  - Vaginal haemorrhage [Recovered/Resolved]
  - Medical device complication [Recovered/Resolved]
  - Medical device complication [Recovered/Resolved]
  - Device difficult to use [Recovered/Resolved]
